FAERS Safety Report 19819262 (Version 1)
Quarter: 2021Q3

REPORT INFORMATION
  Report Type: Spontaneous
  Country: US (occurrence: US)
  Receive Date: 20210913
  Receipt Date: 20210913
  Transmission Date: 20211014
  Serious: Yes (Other)
  Sender: FDA-Public Use
  Company Number: US-JNJFOC-20210914673

PATIENT
  Sex: Female

DRUGS (11)
  1. TUKYSA [Concomitant]
     Active Substance: TUCATINIB
     Indication: BREAST CANCER FEMALE
     Route: 065
  2. TUKYSA [Concomitant]
     Active Substance: TUCATINIB
     Route: 065
  3. TUKYSA [Concomitant]
     Active Substance: TUCATINIB
     Route: 065
  4. TUKYSA [Concomitant]
     Active Substance: TUCATINIB
     Route: 065
  5. TUKYSA [Concomitant]
     Active Substance: TUCATINIB
     Route: 065
  6. TUKYSA [Concomitant]
     Active Substance: TUCATINIB
     Route: 065
  7. BENADRYL [Suspect]
     Active Substance: DIPHENHYDRAMINE HYDROCHLORIDE
     Indication: PRODUCT USED FOR UNKNOWN INDICATION
     Route: 065
  8. TUKYSA [Concomitant]
     Active Substance: TUCATINIB
     Route: 065
  9. TUKYSA [Concomitant]
     Active Substance: TUCATINIB
     Route: 065
  10. TUKYSA [Concomitant]
     Active Substance: TUCATINIB
     Route: 065
  11. TUKYSA [Concomitant]
     Active Substance: TUCATINIB
     Route: 065

REACTIONS (3)
  - Abdominal rigidity [Unknown]
  - Brain oedema [Unknown]
  - Muscle spasms [Unknown]
